FAERS Safety Report 9677806 (Version 3)
Quarter: 2013Q4

REPORT INFORMATION
  Report Type: Spontaneous
  Country: US (occurrence: US)
  Receive Date: 20131108
  Receipt Date: 20131119
  Transmission Date: 20140711
  Serious: Yes (Hospitalization)
  Sender: FDA-Public Use
  Company Number: US-PFIZER INC-2013314225

PATIENT
  Age: 80 Year
  Sex: Male
  Weight: 79.37 kg

DRUGS (4)
  1. ZYVOX [Suspect]
     Indication: URINARY TRACT INFECTION
     Dosage: 600 MG, 2X/DAY
     Route: 048
     Dates: start: 20131025, end: 20131105
  2. PERCOCET [Suspect]
     Indication: DEPRESSION
     Dosage: 5/325 MG
  3. PERCOCET [Suspect]
     Indication: NERVOUSNESS
  4. BACTRIM [Suspect]
     Indication: URINARY TRACT INFECTION
     Dosage: UNK
     Dates: start: 2013, end: 2013

REACTIONS (15)
  - Urinary tract infection [Unknown]
  - Product quality issue [Unknown]
  - Feeling abnormal [Unknown]
  - Off label use [Unknown]
  - Therapeutic response unexpected [Unknown]
  - Hypersensitivity [Unknown]
  - Urticaria [Unknown]
  - Nausea [Unknown]
  - Headache [Unknown]
  - Glossodynia [Unknown]
  - Abdominal pain upper [Unknown]
  - Decreased appetite [Unknown]
  - Dry mouth [Unknown]
  - Diarrhoea [Unknown]
  - Nausea [Unknown]
